FAERS Safety Report 24353821 (Version 1)
Quarter: 2024Q3

REPORT INFORMATION
  Report Type: Spontaneous
  Country: US (occurrence: US)
  Receive Date: 20240923
  Receipt Date: 20240923
  Transmission Date: 20241017
  Serious: No
  Sender: ROCHE
  Company Number: US-ROCHE-10000085343

PATIENT
  Age: 68 Year
  Sex: Female
  Weight: 83.91 kg

DRUGS (11)
  1. ACTEMRA ACTPEN [Suspect]
     Active Substance: TOCILIZUMAB
     Indication: Giant cell arteritis
     Route: 058
  2. LEVOTHYROXINE [Concomitant]
     Active Substance: LEVOTHYROXINE\LEVOTHYROXINE SODIUM
     Indication: Hyperthyroidism
     Route: 048
  3. PREDNISONE [Concomitant]
     Active Substance: PREDNISONE
     Indication: Giant cell arteritis
     Route: 048
  4. CITALOPRAM [Concomitant]
     Active Substance: CITALOPRAM\CITALOPRAM HYDROBROMIDE
     Indication: Anxiety
     Route: 048
  5. CITALOPRAM [Concomitant]
     Active Substance: CITALOPRAM\CITALOPRAM HYDROBROMIDE
     Indication: Depression
  6. FOSAMAX [Concomitant]
     Active Substance: ALENDRONATE SODIUM
     Indication: Osteoporosis
     Route: 048
     Dates: start: 20240826
  7. LATANOPROST [Concomitant]
     Active Substance: LATANOPROST
     Dosage: DAILY
     Route: 047
  8. FLUTICASONE [Concomitant]
     Active Substance: FLUTICASONE
     Dosage: AS NEEDED
     Route: 045
  9. CALCIUM [Concomitant]
     Active Substance: CALCIUM
     Route: 048
  10. IRON [Concomitant]
     Active Substance: IRON
     Indication: Blood iron decreased
     Route: 048
     Dates: start: 202407
  11. ACETAMINOPHEN\ASPIRIN\CAFFEINE\SALICYLAMIDE [Concomitant]
     Active Substance: ACETAMINOPHEN\ASPIRIN\CAFFEINE\SALICYLAMIDE
     Dosage: WHEN NEEDED
     Route: 048

REACTIONS (4)
  - Product dose omission issue [Unknown]
  - Skin indentation [Recovered/Resolved]
  - Device defective [Unknown]
  - Needle issue [Unknown]

NARRATIVE: CASE EVENT DATE: 20240916
